FAERS Safety Report 15593903 (Version 2)
Quarter: 2018Q4

REPORT INFORMATION
  Report Type: Spontaneous
  Country: FR (occurrence: FR)
  Receive Date: 20181107
  Receipt Date: 20181121
  Transmission Date: 20190205
  Serious: Yes (Other)
  Sender: FDA-Public Use
  Company Number: FR-ALSI-201800605

PATIENT
  Age: 76 Year
  Sex: Male

DRUGS (1)
  1. OXYGEN. [Suspect]
     Active Substance: OXYGEN
     Indication: CHRONIC OBSTRUCTIVE PULMONARY DISEASE
     Route: 055

REACTIONS (4)
  - Wrong technique in product usage process [Recovering/Resolving]
  - Frostbite [Recovering/Resolving]
  - Burns second degree [Recovering/Resolving]
  - Device leakage [Recovering/Resolving]
